FAERS Safety Report 9756519 (Version 1)
Quarter: 2013Q4

REPORT INFORMATION
  Report Type: Spontaneous
  Country: US (occurrence: US)
  Receive Date: 20131213
  Receipt Date: 20131213
  Transmission Date: 20140711
  Serious: No
  Sender: FDA-Public Use
  Company Number: US-GLAXOSMITHKLINE-A1044265A

PATIENT
  Age: 59 Year
  Sex: Male

DRUGS (6)
  1. NICODERM CQ 21MG [Suspect]
     Indication: EX-TOBACCO USER
     Route: 062
     Dates: start: 201308
  2. NICODERM CQ CLEAR 14MG [Suspect]
     Indication: EX-TOBACCO USER
     Route: 062
     Dates: start: 201309
  3. ADVAIR [Concomitant]
  4. PRO-AIR [Concomitant]
  5. PLAVIX [Concomitant]
  6. ASPIRIN [Concomitant]

REACTIONS (6)
  - Restlessness [Recovered/Resolved]
  - Abnormal dreams [Recovered/Resolved]
  - Cold sweat [Recovered/Resolved]
  - Increased appetite [Not Recovered/Not Resolved]
  - Drug ineffective [Unknown]
  - Drug administration error [Unknown]
